FAERS Safety Report 9829335 (Version 2)
Quarter: 2014Q1

REPORT INFORMATION
  Report Type: Report from Study
  Country: CA (occurrence: CA)
  Receive Date: 20140120
  Receipt Date: 20140120
  Transmission Date: 20141002
  Serious: Yes (Other)
  Sender: FDA-Public Use
  Company Number: CA-ROCHE-1202836

PATIENT
  Age: 56 Year
  Sex: Female
  Weight: 69.9 kg

DRUGS (14)
  1. RITUXAN [Suspect]
     Indication: POLYMYOSITIS
     Route: 042
     Dates: start: 20120607
  2. RITUXAN [Suspect]
     Indication: OFF LABEL USE
  3. DIPHENHYDRAMINE HCL [Concomitant]
     Indication: PREMEDICATION
     Route: 048
     Dates: start: 20120607
  4. ACETAMINOPHEN [Concomitant]
     Indication: PREMEDICATION
     Route: 048
     Dates: start: 20120607
  5. METHYLPREDNISOLONE [Concomitant]
     Indication: PREMEDICATION
     Route: 042
     Dates: start: 20120607
  6. INSULIN [Concomitant]
  7. MICARDIS PLUS [Concomitant]
  8. RALOXIFENE [Concomitant]
  9. PREDNISONE [Concomitant]
  10. TRAMACET [Concomitant]
  11. ASPIRIN [Concomitant]
     Route: 065
  12. ACTONEL [Concomitant]
     Route: 065
  13. JANUVIA [Concomitant]
  14. PREGABALIN [Concomitant]

REACTIONS (4)
  - Fibromyalgia [Unknown]
  - Myositis [Unknown]
  - Throat irritation [Recovered/Resolved]
  - Cough [Recovering/Resolving]
